FAERS Safety Report 6438897-6 (Version None)
Quarter: 2009Q4

REPORT INFORMATION
  Report Type: 
  Country: None (occurrence: None)
  Receive Date: 20091113
  Receipt Date: 20091105
  Transmission Date: 20100525
  Serious: Yes (Other)
  Sender: FDA-Public Use
  Company Number: PHHY2009JP48499

PATIENT
  Age: 54 Year
  Sex: Male

DRUGS (6)
  1. TEGRETOL [Suspect]
     Indication: EPILEPSY
     Route: 048
  2. GABAPENTIN [Concomitant]
     Indication: EPILEPSY
     Dosage: UNK
     Route: 048
  3. SELENICA-R [Concomitant]
     Indication: EPILEPSY
     Route: 048
  4. MYSTAN [Concomitant]
     Indication: EPILEPSY
     Route: 048
  5. ALLEGRA [Concomitant]
     Route: 048
  6. NORVASC [Concomitant]
     Route: 048

REACTIONS (2)
  - HYPONATRAEMIA [None]
  - ORTHOPEDIC PROCEDURE [None]
